FAERS Safety Report 19264632 (Version 5)
Quarter: 2023Q1

REPORT INFORMATION
  Report Type: Report from Study
  Country: US (occurrence: US)
  Receive Date: 20210517
  Receipt Date: 20230117
  Transmission Date: 20230417
  Serious: No
  Sender: FDA-Public Use
  Company Number: US-GLAXOSMITHKLINE-US2021AMR060405

PATIENT

DRUGS (1)
  1. BELANTAMAB MAFODOTIN [Suspect]
     Active Substance: BELANTAMAB MAFODOTIN
     Indication: Product used for unknown indication
     Dosage: UNK
     Dates: start: 20210216

REACTIONS (8)
  - Keratopathy [Unknown]
  - Visual acuity reduced [Not Recovered/Not Resolved]
  - Night blindness [Not Recovered/Not Resolved]
  - Photophobia [Unknown]
  - Diplopia [Unknown]
  - Dry eye [Not Recovered/Not Resolved]
  - Foreign body sensation in eyes [Unknown]
  - Eye disorder [Unknown]
